FAERS Safety Report 14195467 (Version 1)
Quarter: 2017Q4

REPORT INFORMATION
  Report Type: Spontaneous
  Country: US (occurrence: US)
  Receive Date: 20171116
  Receipt Date: 20171116
  Transmission Date: 20180321
  Serious: Yes (Other)
  Sender: FDA-Public Use
  Company Number: US-INDIVIOR LIMITED-INDV-104924-2017

PATIENT
  Age: 40 Year
  Sex: Male

DRUGS (12)
  1. BUPRENORPHINE/NALOXONE GENERIC [Suspect]
     Active Substance: BUPRENORPHINE\NALOXONE
     Indication: DRUG USE DISORDER
     Dosage: UNK
     Route: 065
     Dates: start: 2016
  2. BUPRENORPHINE/NALOXONE GENERIC [Suspect]
     Active Substance: BUPRENORPHINE\NALOXONE
     Dosage: TAPERED DOWN TO 4 MG, UNK
     Route: 065
     Dates: start: 201705, end: 201708
  3. SODIUM [Concomitant]
     Active Substance: SODIUM
     Indication: PRODUCT USED FOR UNKNOWN INDICATION
     Dosage: 2000 MG, UNK
     Route: 065
  4. SUBOXONE [Suspect]
     Active Substance: BUPRENORPHINE HYDROCHLORIDE\NALOXONE HYDROCHLORIDE
     Dosage: 8MG UNK
     Route: 060
     Dates: start: 2017, end: 2017
  5. SUBOXONE [Suspect]
     Active Substance: BUPRENORPHINE HYDROCHLORIDE\NALOXONE HYDROCHLORIDE
     Indication: DRUG DEPENDENCE
     Dosage: 4 MG, UNK
     Route: 060
     Dates: start: 201708, end: 2017
  6. SUBOXONE [Suspect]
     Active Substance: BUPRENORPHINE HYDROCHLORIDE\NALOXONE HYDROCHLORIDE
     Dosage: 6MG UNK
     Route: 060
     Dates: start: 2017, end: 2017
  7. SUBOXONE [Suspect]
     Active Substance: BUPRENORPHINE HYDROCHLORIDE\NALOXONE HYDROCHLORIDE
     Dosage: UNK, SELF TAPERING
     Route: 060
     Dates: start: 2017, end: 2017
  8. TOPAMAX [Concomitant]
     Active Substance: TOPIRAMATE
     Indication: PRODUCT USED FOR UNKNOWN INDICATION
     Dosage: UNK
     Route: 065
  9. SUBOXONE [Suspect]
     Active Substance: BUPRENORPHINE HYDROCHLORIDE\NALOXONE HYDROCHLORIDE
     Dosage: BID (8MG IN THE MORNING THEN TAKES HALF A FILM 2 TO 3 HOURS LATER)
     Route: 060
     Dates: start: 2017
  10. BUSPIRONE [Concomitant]
     Active Substance: BUSPIRONE HYDROCHLORIDE
     Indication: PRODUCT USED FOR UNKNOWN INDICATION
     Dosage: UNK
     Route: 065
  11. SUBOXONE [Suspect]
     Active Substance: BUPRENORPHINE HYDROCHLORIDE\NALOXONE HYDROCHLORIDE
     Dosage: 12 MG, UNK
     Route: 060
     Dates: start: 2017, end: 2017
  12. BUPRENORPHINE/NALOXONE GENERIC [Suspect]
     Active Substance: BUPRENORPHINE\NALOXONE
     Dosage: 16MG UNK
     Route: 065

REACTIONS (24)
  - Lyme disease [Unknown]
  - Product use issue [Unknown]
  - Electrolyte imbalance [Unknown]
  - Drug withdrawal syndrome [Unknown]
  - Dehydration [Unknown]
  - Blood pressure increased [Unknown]
  - Fatigue [Unknown]
  - Nausea [Unknown]
  - Dizziness [Unknown]
  - Cold sweat [Unknown]
  - Feeling cold [Unknown]
  - Peripheral coldness [Unknown]
  - Adverse event [Unknown]
  - Pain [Unknown]
  - Decreased appetite [Unknown]
  - Intentional underdose [Unknown]
  - Product formulation issue [Unknown]
  - Feeling abnormal [Unknown]
  - Confusional state [Unknown]
  - Wrong technique in product usage process [Unknown]
  - Chills [Unknown]
  - Drug ineffective [Unknown]
  - Heart rate irregular [Unknown]
  - Hypoaesthesia [Unknown]

NARRATIVE: CASE EVENT DATE: 2017
